FAERS Safety Report 5325270-7 (Version None)
Quarter: 2007Q2

REPORT INFORMATION
  Report Type: 
  Country: None (occurrence: None)
  Receive Date: 20070220
  Receipt Date: 20061219
  Transmission Date: 20071010
  Serious: No
  Sender: FDA-Public Use
  Company Number: WAES 0612USA03185

PATIENT
  Sex: Male

DRUGS (2)
  1. JANUVIA [Suspect]
     Dosage: 100  MG/DAILY/PO
     Route: 048
     Dates: start: 20061215
  2. GLIMEPIRIDE [Concomitant]

REACTIONS (1)
  - BLOOD GLUCOSE INCREASED [None]
